FAERS Safety Report 16347377 (Version 1)
Quarter: 2019Q2

REPORT INFORMATION
  Report Type: Spontaneous
  Country: US (occurrence: US)
  Receive Date: 20190523
  Receipt Date: 20190523
  Transmission Date: 20190711
  Serious: No
  Sender: FDA-Public Use
  Company Number: US-009507513-1905USA000432

PATIENT
  Age: 17 Year
  Sex: Male

DRUGS (2)
  1. LOMUSTINE. [Concomitant]
     Active Substance: LOMUSTINE
     Indication: GLIOBLASTOMA
     Dosage: UNK
  2. TEMODAR [Suspect]
     Active Substance: TEMOZOLOMIDE
     Indication: GLIOBLASTOMA
     Dosage: UNK
     Route: 048

REACTIONS (1)
  - Off label use [Unknown]
